FAERS Safety Report 5037223-7 (Version None)
Quarter: 2006Q2

REPORT INFORMATION
  Report Type: 
  Country: None (occurrence: None)
  Receive Date: 20060628
  Receipt Date: 20050823
  Transmission Date: 20061013
  Serious: Yes (Death)
  Sender: FDA-Public Use
  Company Number: FR-SANOFI-SYNTHELABO-A02200502256

PATIENT
  Age: 6 Year
  Sex: Male

DRUGS (1)
  1. STILNOX [Suspect]
     Indication: POISONING
     Dosage: UNK
     Route: 048

REACTIONS (9)
  - ABDOMINAL DISTENSION [None]
  - AUTISM [None]
  - DROWNING [None]
  - DRUG EXPOSURE DURING PREGNANCY [None]
  - DRUG EXPOSURE VIA BREAST MILK [None]
  - FLATULENCE [None]
  - OVERDOSE [None]
  - SEDATION [None]
  - VICTIM OF CRIME [None]
